FAERS Safety Report 5231628-7 (Version None)
Quarter: 2007Q1

REPORT INFORMATION
  Report Type: 
  Country: None (occurrence: None)
  Receive Date: 20070202
  Receipt Date: 20070124
  Transmission Date: 20070707
  Serious: Yes (Other)
  Sender: FDA-Public Use
  Company Number: 2007SP001530

PATIENT
  Age: 73 Year
  Sex: Male

DRUGS (15)
  1. IMDUR [Suspect]
     Indication: DRUG USE FOR UNKNOWN INDICATION
  2. TEMAZEPAM [Suspect]
     Indication: DRUG USE FOR UNKNOWN INDICATION
     Dosage: 7.5 MG
  3. CRESTOR [Suspect]
     Indication: DRUG USE FOR UNKNOWN INDICATION
     Dosage: PO
     Route: 048
     Dates: end: 20070118
  4. DIOVAN [Suspect]
     Indication: DRUG USE FOR UNKNOWN INDICATION
  5. VISTARIL [Suspect]
     Indication: DRUG USE FOR UNKNOWN INDICATION
     Dosage: BID
  6. ZESTRIL [Suspect]
     Indication: DRUG USE FOR UNKNOWN INDICATION
     Dosage: PO
     Route: 048
     Dates: end: 20070118
  7. PARACETAMOL [Concomitant]
  8. CODEINE PHOSPHATE [Concomitant]
  9. ASPIRIN [Concomitant]
  10. COREG [Concomitant]
  11. FUROSEMIDE [Concomitant]
  12. HUMULIN N [Concomitant]
  13. HUMULIN 70/30 [Concomitant]
  14. KLOR-CON [Concomitant]
  15. PLAVIX [Concomitant]

REACTIONS (2)
  - HEPATIC ENZYME INCREASED [None]
  - JAUNDICE [None]
